FAERS Safety Report 8830972 (Version 1)
Quarter: 2012Q4

REPORT INFORMATION
  Report Type: 
  Country: BR (occurrence: BR)
  Receive Date: 20121008
  Receipt Date: 20121008
  Transmission Date: 20130627
  Serious: Yes (Other)
  Sender: FDA-Public Use
  Company Number: BR-PFIZER INC-2012246306

PATIENT
  Age: 48 Year
  Sex: Female
  Weight: 95 kg

DRUGS (12)
  1. LYRICA [Suspect]
     Indication: FIBROMYALGIA
     Dosage: 75 mg (one capsule), 3x/day
     Route: 048
     Dates: start: 2009
  2. ALPRAZOLAM [Concomitant]
     Indication: FIBROMYALGIA
     Dosage: UNK
     Dates: start: 1998
  3. ALPRAZOLAM [Concomitant]
     Indication: ANXIETY
  4. FRONTAL [Concomitant]
     Indication: FIBROMYALGIA
     Dosage: UNK
     Dates: start: 1998, end: 2000
  5. FRONTAL [Concomitant]
     Indication: ANXIETY
  6. CLONAZEPAM [Concomitant]
     Indication: PANIC DISORDER
     Dosage: UNK
     Dates: start: 1998
  7. OLCADIL [Concomitant]
     Indication: PANIC DISORDER
     Dosage: UNK
     Dates: start: 201104
  8. OLCADIL [Concomitant]
     Indication: DEPRESSION
  9. SERTRALINE [Concomitant]
     Indication: PANIC DISORDER
     Dosage: 100 mg, 1x/day
     Dates: start: 2011
  10. VENLAFAXINE [Concomitant]
     Indication: FIBROMYALGIA
  11. VENLAFAXINE [Concomitant]
     Indication: DEPRESSION
  12. OXYCONTIN [Concomitant]
     Indication: PAIN
     Dosage: UNK
     Dates: start: 201203

REACTIONS (4)
  - Diabetes mellitus [Unknown]
  - Hypothyroidism [Unknown]
  - Uterine leiomyoma [Unknown]
  - Weight increased [Unknown]
